FAERS Safety Report 21591741 (Version 1)
Quarter: 2022Q4

REPORT INFORMATION
  Report Type: Spontaneous
  Country: CN (occurrence: CN)
  Receive Date: 20221114
  Receipt Date: 20221114
  Transmission Date: 20230112
  Serious: Yes (Other)
  Sender: FDA-Public Use
  Company Number: CN-009507513-2211CHN002460

PATIENT
  Age: 90 Year
  Sex: Male

DRUGS (2)
  1. CILASTATIN SODIUM\IMIPENEM [Suspect]
     Active Substance: CILASTATIN SODIUM\IMIPENEM
     Indication: Pneumonia
     Dosage: 0.5 G, QID
     Route: 041
     Dates: start: 20221008, end: 20221010
  2. SODIUM CHLORIDE [Concomitant]
     Active Substance: SODIUM CHLORIDE
     Indication: Pneumonia
     Dosage: 100 ML, QID
     Route: 041
     Dates: start: 20221008, end: 20221010

REACTIONS (7)
  - Epilepsy [Recovering/Resolving]
  - Tachyarrhythmia [Unknown]
  - Dyspnoea [Unknown]
  - Pallor [Unknown]
  - Productive cough [Unknown]
  - Oxygen saturation decreased [Unknown]
  - Blood pressure abnormal [Unknown]

NARRATIVE: CASE EVENT DATE: 20221010
